FAERS Safety Report 9053252 (Version 2)
Quarter: 2013Q1

REPORT INFORMATION
  Report Type: Spontaneous
  Country: JP (occurrence: JP)
  Receive Date: 20130207
  Receipt Date: 20130212
  Transmission Date: 20140127
  Serious: Yes (Hospitalization)
  Sender: FDA-Public Use
  Company Number: JP-GILEAD-2013-0069297

PATIENT
  Sex: Male

DRUGS (6)
  1. HEPSERA [Suspect]
     Indication: HEPATITIS B
     Dosage: 10 MG, QD
     Route: 048
  2. HEPSERA [Suspect]
     Dosage: 10MG PER DAY
     Route: 048
  3. ZEFIX [Suspect]
     Indication: HEPATITIS B
     Dosage: 1IUAX PER DAY
     Route: 048
  4. AMINOLEBAN                         /01982601/ [Concomitant]
     Route: 042
  5. GASTER [Concomitant]
     Dosage: 10MG TWICE PER DAY
     Route: 048
  6. FLIVAS [Concomitant]
     Dosage: 25MG PER DAY
     Route: 048

REACTIONS (5)
  - Fracture [Unknown]
  - Blood calcium decreased [Unknown]
  - Ammonia abnormal [Unknown]
  - Blood phosphorus decreased [Unknown]
  - Hypophosphataemia [Not Recovered/Not Resolved]
